FAERS Safety Report 25151889 (Version 1)
Quarter: 2025Q2

REPORT INFORMATION
  Report Type: Spontaneous
  Country: CA (occurrence: CA)
  Receive Date: 20250402
  Receipt Date: 20250402
  Transmission Date: 20250717
  Serious: Yes (Death)
  Sender: JOHNSON AND JOHNSON
  Company Number: CA-JNJFOC-20250373666

PATIENT
  Age: 39 Year
  Sex: Female

DRUGS (1)
  1. INVOKANA [Suspect]
     Active Substance: CANAGLIFLOZIN
     Indication: Product used for unknown indication
     Route: 048

REACTIONS (9)
  - Accidental death [Fatal]
  - Brain oedema [Fatal]
  - Dialysis [Fatal]
  - Hyperglycaemia [Fatal]
  - Hypernatraemia [Fatal]
  - Hyperosmolar state [Fatal]
  - Ketoacidosis [Fatal]
  - Septic shock [Fatal]
  - Syncope [Fatal]
